FAERS Safety Report 21603258 (Version 2)
Quarter: 2022Q4

REPORT INFORMATION
  Report Type: Report from Study
  Country: US (occurrence: US)
  Receive Date: 20221116
  Receipt Date: 20221118
  Transmission Date: 20230113
  Serious: No
  Sender: FDA-Public Use
  Company Number: US-ABBVIE-22K-163-4472269-00

PATIENT
  Sex: Female

DRUGS (4)
  1. HUMIRA [Suspect]
     Active Substance: ADALIMUMAB
     Indication: Colitis ulcerative
     Dosage: DAY 1/FORM STRENGTH: 40 MILLIGRAM
     Route: 058
     Dates: start: 20210906, end: 20210906
  2. HUMIRA [Suspect]
     Active Substance: ADALIMUMAB
     Dosage: DAY 15/FORM STRENGTH: 40 MILLIGRAM
     Route: 058
     Dates: start: 20210920, end: 20210920
  3. HUMIRA [Suspect]
     Active Substance: ADALIMUMAB
     Dosage: FORM STRENGTH: 40 MILLIGRAM
     Route: 058
     Dates: start: 20211004
  4. PFIZER-BIONTECH COVID-19 VACCINE [Concomitant]
     Active Substance: TOZINAMERAN
     Indication: COVID-19 immunisation
     Route: 030

REACTIONS (7)
  - Defaecation urgency [Unknown]
  - Diarrhoea [Recovered/Resolved]
  - Vitamin B12 increased [Unknown]
  - Muscle spasms [Unknown]
  - Abdominal discomfort [Unknown]
  - Haemorrhage [Recovered/Resolved]
  - Adverse food reaction [Unknown]

NARRATIVE: CASE EVENT DATE: 20220101
